FAERS Safety Report 5230244-0 (Version None)
Quarter: 2007Q1

REPORT INFORMATION
  Report Type: 
  Country: None (occurrence: None)
  Receive Date: 20070206
  Receipt Date: 20061019
  Transmission Date: 20070707
  Serious: No
  Sender: FDA-Public Use
  Company Number: US-GLAXOSMITHKLINE-A0624234A

PATIENT
  Sex: Female

DRUGS (4)
  1. PAXIL CR [Suspect]
     Indication: DEPRESSION
     Route: 048
     Dates: start: 20061002
  2. LEVOXYL [Concomitant]
  3. XANAX [Concomitant]
  4. ALLERGY MEDICATION [Concomitant]

REACTIONS (1)
  - DRUG INEFFECTIVE [None]
